FAERS Safety Report 7121126-8 (Version None)
Quarter: 2010Q4

REPORT INFORMATION
  Report Type: 
  Country: None (occurrence: None)
  Receive Date: 20101124
  Receipt Date: 20100720
  Transmission Date: 20110411
  Serious: No
  Sender: FDA-Public Use
  Company Number: US-PFIZER INC-2010076909

PATIENT
  Sex: Female
  Weight: 91 kg

DRUGS (8)
  1. TIKOSYN [Suspect]
     Indication: ATRIAL FIBRILLATION
     Dosage: 500 UG, 2X/DAY
  2. TIKOSYN [Suspect]
     Indication: HEART VALVE REPLACEMENT
  3. TIKOSYN [Suspect]
     Indication: CARDIAC PACEMAKER INSERTION
  4. TIKOSYN [Suspect]
     Indication: CARDIAC ABLATION
  5. WARFARIN [Concomitant]
     Dosage: UNK
  6. ZOCOR [Concomitant]
     Dosage: UNK
  7. COREG [Concomitant]
     Dosage: UNK
  8. LASIX [Concomitant]
     Dosage: UNK

REACTIONS (1)
  - SINUSITIS [None]
